FAERS Safety Report 9517320 (Version 3)
Quarter: 2014Q2

REPORT INFORMATION
  Report Type: Spontaneous
  Country: IT (occurrence: IT)
  Receive Date: 20130911
  Receipt Date: 20140404
  Transmission Date: 20141212
  Serious: Yes (Hospitalization)
  Sender: FDA-Public Use
  Company Number: IT-009507513-1309ITA001221

PATIENT
  Age: 59 Year
  Sex: Female
  Weight: 63 kg

DRUGS (4)
  1. REBETOL [Suspect]
     Indication: CHRONIC HEPATITIS C
     Dosage: DAILY 400 MG, DAILY
     Route: 048
     Dates: start: 20130506
  2. TELAPREVIR [Interacting]
     Indication: CHRONIC HEPATITIS C
     Dosage: DAILY 750 MG, DAILY
     Route: 048
     Dates: start: 20130607
  3. PEGASYS [Interacting]
     Indication: CHRONIC HEPATITIS C
     Dosage: 180 MCG WEEKLY, WEEKLY
     Route: 058
     Dates: start: 20130506, end: 20130812
  4. MODURETIC 5/50 MG COMPRESSE [Concomitant]
     Indication: HYPERTENSION
     Dosage: 27.5 MG, STRENGTH:5MG+50 MG
     Route: 048
     Dates: start: 20130101

REACTIONS (3)
  - Pyelonephritis acute [Recovered/Resolved]
  - Escherichia bacteraemia [Recovered/Resolved]
  - Hyperpyrexia [Recovered/Resolved]
